FAERS Safety Report 18151394 (Version 1)
Quarter: 2020Q3

REPORT INFORMATION
  Report Type: Report from Study
  Country: CA (occurrence: CA)
  Receive Date: 20200814
  Receipt Date: 20200814
  Transmission Date: 20201103
  Serious: Yes (Hospitalization)
  Sender: FDA-Public Use
  Company Number: CA-MYLANLABS-2020M1061064

PATIENT
  Age: 67 Year
  Sex: Male
  Weight: 99.79 kg

DRUGS (16)
  1. SEROQUEL [Concomitant]
     Active Substance: QUETIAPINE FUMARATE
     Dosage: 300 MILLIGRAM, QHS
     Route: 048
  2. INVEGA SUSTENNA [Concomitant]
     Active Substance: PALIPERIDONE PALMITATE
     Dosage: 150 MILLIGRAM, Q2W
     Route: 030
  3. CLOZAPINE. [Suspect]
     Active Substance: CLOZAPINE
     Indication: SCHIZOAFFECTIVE DISORDER BIPOLAR TYPE
     Dosage: 150 MILLIGRAM, QHS
     Route: 048
     Dates: start: 20191231, end: 20200625
  4. EPIVAL                             /00017001/ [Concomitant]
     Active Substance: DIAZEPAM
     Dosage: 1250 MILLIGRAM, QHS
     Route: 048
  5. OLANZAPINE. [Concomitant]
     Active Substance: OLANZAPINE
     Dosage: 10 MILLIGRAM, PRN TID
     Route: 048
  6. VENTOLIN [Concomitant]
     Active Substance: ALBUTEROL SULFATE
     Dosage: 100 MICROGRAM, 2 PUFFS, Q4H, PRN
  7. FUROSEMIDE. [Concomitant]
     Active Substance: FUROSEMIDE
     Dosage: 10 MILLIGRAM, QD
     Route: 048
  8. GABAPENTIN. [Concomitant]
     Active Substance: GABAPENTIN
     Dosage: 200 MILLIGRAM, QHS
     Route: 048
  9. SEROQUEL [Concomitant]
     Active Substance: QUETIAPINE FUMARATE
     Dosage: 400 MILLIGRAM, BID
     Route: 048
  10. CLONAZEPAM. [Concomitant]
     Active Substance: CLONAZEPAM
     Dosage: 1 MILLIGRAM, QHS
     Route: 048
  11. PROPRANOLOL [Concomitant]
     Active Substance: PROPRANOLOL HYDROCHLORIDE
     Dosage: 40 MILLIGRAM, BID
     Route: 048
  12. SYMBICORT [Concomitant]
     Active Substance: BUDESONIDE\FORMOTEROL FUMARATE DIHYDRATE
     Dosage: 200/6 2 PUFF, BID,PRN
  13. CLOZAPINE. [Suspect]
     Active Substance: CLOZAPINE
     Dosage: UNK
     Dates: start: 202001, end: 202006
  14. RAMIPRIL. [Concomitant]
     Active Substance: RAMIPRIL
     Dosage: 10 MILLIGRAM, QD
     Route: 048
  15. GABAPENTIN. [Concomitant]
     Active Substance: GABAPENTIN
     Dosage: 100 MILLIGRAM, QD
     Route: 048
  16. OLANZAPINE. [Concomitant]
     Active Substance: OLANZAPINE
     Dosage: 5 MILLIGRAM, BID
     Route: 048

REACTIONS (2)
  - Off label use [Unknown]
  - Granulocytopenia [Not Recovered/Not Resolved]

NARRATIVE: CASE EVENT DATE: 20191231
